FAERS Safety Report 9344390 (Version 1)
Quarter: 2013Q2

REPORT INFORMATION
  Report Type: Spontaneous
  Country: US (occurrence: US)
  Receive Date: 20130612
  Receipt Date: 20130612
  Transmission Date: 20140414
  Serious: No
  Sender: FDA-Public Use
  Company Number: US-US-EMD SERONO, INC.-7095801

PATIENT
  Age: 49 Year
  Sex: Female

DRUGS (2)
  1. REBIF [Suspect]
     Indication: MULTIPLE SCLEROSIS
     Route: 058
     Dates: start: 20110503, end: 2012
  2. CYMBALTA [Concomitant]
     Indication: DEPRESSION

REACTIONS (8)
  - Endometrial hyperplasia [Recovered/Resolved]
  - Foot fracture [Recovered/Resolved]
  - Pain [Unknown]
  - Chills [Unknown]
  - Injection site bruising [Unknown]
  - Injection site erythema [Unknown]
  - Depression [Unknown]
  - Influenza like illness [Unknown]
